FAERS Safety Report 5740128-7 (Version None)
Quarter: 2008Q2

REPORT INFORMATION
  Report Type: 
  Country: None (occurrence: None)
  Receive Date: 20080513
  Receipt Date: 20080428
  Transmission Date: 20081010
  Serious: Yes (Other)
  Sender: FDA-Public Use
  Company Number: DSA_31812_2008

PATIENT
  Age: 63 Year
  Sex: Male

DRUGS (2)
  1. DILTIAZEM HYDROCHLORIDE [Suspect]
     Indication: HYPERTENSION
     Dosage: (300 MG QD ORAL)
     Route: 048
     Dates: start: 20080212, end: 20080325
  2. OLMESARTAN MEDOXOMIL [Concomitant]

REACTIONS (2)
  - GINGIVAL BLEEDING [None]
  - HYPERPLASIA [None]
